FAERS Safety Report 4564588-2 (Version None)
Quarter: 2005Q1

REPORT INFORMATION
  Report Type: 
  Country: None (occurrence: None)
  Receive Date: 20050126
  Receipt Date: 20050113
  Transmission Date: 20050727
  Serious: Yes (Other)
  Sender: FDA-Public Use
  Company Number: 2004117226

PATIENT
  Age: 44 Year
  Sex: Male

DRUGS (8)
  1. DIFLUCAN [Suspect]
     Indication: ANTIFUNGAL PROPHYLAXIS
     Dosage: 200 MG (1 D), ORAL
     Route: 048
     Dates: start: 20041201, end: 20041215
  2. PRODIF (FOSFLUCONAZOLE) [Suspect]
     Indication: ANTIFUNGAL PROPHYLAXIS
     Dosage: 252.3 MG (1 D), ORAL
     Route: 048
     Dates: start: 20041216, end: 20041219
  3. CARBOPLATIN [Suspect]
     Indication: BONE MARROW CONDITIONING REGIMEN
     Dosage: (1 D), INTRAVENOUS
     Route: 042
     Dates: start: 20041216, end: 20041220
  4. CEFEPIME HYDROCHLORIDE) CEFEPIME HYDROCHLORIDE) [Concomitant]
  5. FILGRASTIM (FILGRASTIM) [Concomitant]
  6. ETIZOLAM (ETIZOLAM) [Concomitant]
  7. HICALIQ (CALCIUM GLUCONATE, GLUCOSE, MAGNESIUM SULFATE, POTASSIUM ACET [Concomitant]
  8. MULTIPLE VITAMINS (ASCORBIC ACID, ERGOCALCIFEROL, FOLIC ACID, RETINOL, [Concomitant]

REACTIONS (4)
  - HAEMODIALYSIS [None]
  - LOSS OF CONSCIOUSNESS [None]
  - RENAL IMPAIRMENT [None]
  - TREMOR [None]
